FAERS Safety Report 5477523-X (Version None)
Quarter: 2007Q4

REPORT INFORMATION
  Report Type: 
  Country: None (occurrence: None)
  Receive Date: 20071001
  Receipt Date: 20070918
  Transmission Date: 20080405
  Serious: Yes (Hospitalization)
  Sender: FDA-Public Use
  Company Number: GXKR2007GB08138

PATIENT
  Age: 42 Year
  Sex: Male

DRUGS (4)
  1. DICLOFENAC (NGX) (DICLOFENAC) UNKNOWN [Suspect]
     Indication: NON-CARDIAC CHEST PAIN
  2. TOBRAMYCIN [Suspect]
     Indication: PSEUDOMONAS INFECTION
     Dosage: 160 MG TID INTRAVENOUS
     Route: 042
  3. CO-TRIMOXAZOLE (CO-TRIMOXAZOLE) UNKNOWN [Suspect]
     Indication: BURKHOLDERIA CEPACIA INFECTION
     Dosage: 1.44 G BID INTRAVENOUS
     Route: 042
  4. COLOMYCIN (COLISTIN) UNKNOWN [Suspect]
     Indication: PSEUDOMONAS INFECTION
     Dosage: 2 MIU TID INTRAVENOUS
     Route: 042

REACTIONS (6)
  - CONDITION AGGRAVATED [None]
  - COORDINATION ABNORMAL [None]
  - DIZZINESS [None]
  - PLEURITIC PAIN [None]
  - RENAL FAILURE ACUTE [None]
  - TINNITUS [None]
